FAERS Safety Report 14861745 (Version 1)
Quarter: 2018Q2

REPORT INFORMATION
  Report Type: Spontaneous
  Country: US (occurrence: US)
  Receive Date: 20180508
  Receipt Date: 20180508
  Transmission Date: 20180711
  Serious: No
  Sender: FDA-Public Use
  Company Number: US-VIFOR (INTERNATIONAL) INC.-VIT-2018-00309

PATIENT
  Sex: Male

DRUGS (10)
  1. METFORMIN HYDROCHLORIDE. [Concomitant]
     Active Substance: METFORMIN HYDROCHLORIDE
  2. MIRALAX [Concomitant]
     Active Substance: POLYETHYLENE GLYCOL 3350
  3. SIMVASTATIN. [Concomitant]
     Active Substance: SIMVASTATIN
  4. COLECALCIFEROL [Concomitant]
     Active Substance: CHOLECALCIFEROL
  5. VELTASSA [Suspect]
     Active Substance: PATIROMER
     Indication: HYPERKALAEMIA
     Route: 048
     Dates: start: 20161105
  6. AMOXICILLIN. [Concomitant]
     Active Substance: AMOXICILLIN
  7. LEVEMIR [Concomitant]
     Active Substance: INSULIN DETEMIR
  8. LISINOPRIL. [Concomitant]
     Active Substance: LISINOPRIL
  9. AGGRENOX [Concomitant]
     Active Substance: ASPIRIN\DIPYRIDAMOLE
  10. CODEINE PHOSPHATE~~PARACETAMOL [Concomitant]

REACTIONS (3)
  - Drug dose omission [Unknown]
  - No adverse event [Recovered/Resolved]
  - Refusal of treatment by patient [Unknown]
